FAERS Safety Report 16371464 (Version 3)
Quarter: 2020Q4

REPORT INFORMATION
  Report Type: Report from Study
  Country: FR (occurrence: FR)
  Receive Date: 20190530
  Receipt Date: 20201008
  Transmission Date: 20210113
  Serious: Yes (Hospitalization)
  Sender: FDA-Public Use
  Company Number: FR-ROCHE-2322528

PATIENT
  Age: 59 Year
  Sex: Female
  Weight: 58 kg

DRUGS (4)
  1. VEMURAFENIB. [Suspect]
     Active Substance: VEMURAFENIB
     Indication: ADENOCARCINOMA OF THE CERVIX
     Dosage: ON 24/APR/2019, SHE RECEIVED THE RECENT DOSE OF VEMURAFENIB.
     Route: 048
     Dates: start: 20180921
  2. SKENAN [Concomitant]
     Active Substance: MORPHINE SULFATE
     Indication: DIARRHOEA
  3. VEMURAFENIB. [Suspect]
     Active Substance: VEMURAFENIB
     Dosage: CUMULATIVE DOSE ADMINISTERED UNTIL 24/APR/2019
     Route: 048
     Dates: start: 20180921
  4. RIVOTRIL [Concomitant]
     Active Substance: CLONAZEPAM
     Indication: PAIN
     Dosage: 3/5 G.
     Route: 048
     Dates: start: 20130322

REACTIONS (2)
  - Epilepsy [Recovered/Resolved]
  - Product dose omission issue [Unknown]

NARRATIVE: CASE EVENT DATE: 20190516
